FAERS Safety Report 8811810 (Version 1)
Quarter: 2012Q4

REPORT INFORMATION
  Report Type: 
  Country: CA (occurrence: CA)
  Receive Date: 20120927
  Receipt Date: 20120927
  Transmission Date: 20130627
  Serious: Yes (Hospitalization)
  Sender: FDA-Public Use
  Company Number: CA-GLAXOSMITHKLINE-A0894979A

PATIENT
  Age: 65 Year
  Sex: Female
  Weight: 54.2 kg

DRUGS (15)
  1. TYKERB [Suspect]
     Indication: BREAST CANCER METASTATIC
     Dosage: 1250MG Per day
     Route: 048
     Dates: start: 20101107
  2. XELODA [Suspect]
     Indication: BREAST CANCER METASTATIC
     Dosage: 1150MG Twice per day
     Route: 065
     Dates: start: 20110131
  3. PREDNISONE [Concomitant]
     Route: 065
  4. LYRICA [Concomitant]
     Route: 065
  5. DILTIAZEM [Concomitant]
     Route: 065
  6. INSULIN [Concomitant]
     Route: 065
  7. SPIRIVA [Concomitant]
     Route: 065
  8. CALCIUM [Concomitant]
     Route: 065
  9. VITAMIN D [Concomitant]
     Route: 065
  10. METFORMIN [Concomitant]
     Route: 065
  11. PARIET [Concomitant]
     Route: 065
  12. ADVAIR [Concomitant]
  13. GABAPENTIN [Concomitant]
  14. FENTANYL [Concomitant]
  15. ENDOCET [Concomitant]

REACTIONS (14)
  - Breast cancer metastatic [Not Recovered/Not Resolved]
  - Metastasis [Not Recovered/Not Resolved]
  - Kidney ablation [Recovered/Resolved]
  - Palmar-plantar erythrodysaesthesia syndrome [Recovered/Resolved]
  - Skin fissures [Unknown]
  - Diarrhoea [Recovered/Resolved]
  - Vomiting [Unknown]
  - Dehydration [Recovering/Resolving]
  - Dry skin [Unknown]
  - Excoriation [Unknown]
  - Blister [Unknown]
  - Skin lesion [Not Recovered/Not Resolved]
  - Nail growth abnormal [Not Recovered/Not Resolved]
  - Dry skin [Not Recovered/Not Resolved]
